FAERS Safety Report 8289010-4 (Version None)
Quarter: 2012Q2

REPORT INFORMATION
  Report Type: 
  Country: None (occurrence: None)
  Receive Date: 20120417
  Receipt Date: 20120410
  Transmission Date: 20120825
  Serious: No
  Sender: FDA-Public Use
  Company Number: US-B.I. PHARMACEUTICALS,INC./RIDGEFIELD-2012-BP-06682BP

PATIENT
  Sex: Male

DRUGS (1)
  1. ZANTAC 150 [Suspect]

REACTIONS (2)
  - DYSPEPSIA [None]
  - DRUG INEFFECTIVE [None]
